FAERS Safety Report 16428221 (Version 4)
Quarter: 2019Q2

REPORT INFORMATION
  Report Type: Spontaneous
  Country: FR (occurrence: FR)
  Receive Date: 20190613
  Receipt Date: 20190627
  Transmission Date: 20190711
  Serious: Yes (Hospitalization, Other)
  Sender: FDA-Public Use
  Company Number: FR-PFIZER INC-2019247510

PATIENT
  Age: 57 Year
  Sex: Female

DRUGS (17)
  1. SERTRALINE HCL [Suspect]
     Active Substance: SERTRALINE HYDROCHLORIDE
     Dosage: UNK
     Route: 048
     Dates: start: 20131107, end: 20140213
  2. ZINNAT [CEFUROXIME AXETIL] [Suspect]
     Active Substance: CEFUROXIME
     Indication: LUNG INFECTION
     Dosage: UNK
     Route: 048
     Dates: start: 20140210, end: 20140212
  3. IXPRIM [Suspect]
     Active Substance: ACETAMINOPHEN\TRAMADOL HYDROCHLORIDE
     Indication: PAIN
     Dosage: 1 GIGABECQUEREL, TWICE DAILY
     Route: 048
     Dates: end: 20140213
  4. PANTOPRAZOLE [Suspect]
     Active Substance: PANTOPRAZOLE
     Indication: PROPHYLAXIS AGAINST GASTROINTESTINAL ULCER
     Dosage: 1 GIGABECQUEREL
     Route: 048
     Dates: end: 20140213
  5. SULFARLEM [Suspect]
     Active Substance: ANETHOLTRITHION
     Indication: CHRONIC OBSTRUCTIVE PULMONARY DISEASE
     Dosage: 1 DOSE FORM, THREE TIMES DAILY
     Route: 048
     Dates: end: 20140213
  6. SPECIAFOLDINE [Concomitant]
     Active Substance: FOLIC ACID
     Dosage: UNK
  7. SERTRALINE HCL [Suspect]
     Active Substance: SERTRALINE HYDROCHLORIDE
     Indication: MENTAL DISORDER
     Dosage: UNK
     Route: 048
     Dates: start: 201308, end: 201310
  8. ACTONEL [Suspect]
     Active Substance: RISEDRONATE SODIUM
     Indication: OSTEOPOROSIS
     Dosage: 35 MILLIGRAM
     Route: 048
     Dates: end: 20140213
  9. METOJECT [Suspect]
     Active Substance: METHOTREXATE SODIUM
     Dosage: UNK UNK, WEEKLY
     Route: 030
     Dates: start: 20131215, end: 20140213
  10. EFFERALGAN [Suspect]
     Active Substance: ACETAMINOPHEN
     Indication: PAIN
     Dosage: 1 MILLIGRAM THREE TIMES DAILY
     Route: 048
     Dates: end: 20140213
  11. OLANZAPINE PFIZER [Suspect]
     Active Substance: OLANZAPINE
     Dosage: UNK
     Route: 048
     Dates: start: 20131107, end: 20140213
  12. METOJECT [Suspect]
     Active Substance: METHOTREXATE SODIUM
     Indication: RHEUMATOID ARTHRITIS
     Dosage: 1 DF, WEEKLY
     Route: 030
     Dates: end: 201310
  13. DITROPAN [Suspect]
     Active Substance: OXYBUTYNIN CHLORIDE
     Indication: URINARY INCONTINENCE
     Dosage: 5 MILLIGRAM ONCE DAILY
     Route: 048
     Dates: end: 20140213
  14. RISPERDALORO [Suspect]
     Active Substance: RISPERIDONE
     Indication: MENTAL DISORDER
     Dosage: 1 MILLIGRAM
     Route: 048
     Dates: start: 20131003, end: 20140213
  15. COVERAM [Suspect]
     Active Substance: AMLODIPINE\PERINDOPRIL
     Indication: HYPERTENSION
     Dosage: 5 MILLIGRAM
     Route: 048
     Dates: end: 20140210
  16. SERETIDE [Suspect]
     Active Substance: FLUTICASONE PROPIONATE\SALMETEROL XINAFOATE
     Indication: CHRONIC OBSTRUCTIVE PULMONARY DISEASE
     Dosage: 1 DOSE FORM, TWICE DAILY
     Route: 055
  17. DIFFU K [Suspect]
     Active Substance: POTASSIUM CHLORIDE
     Indication: HYPOKALAEMIA
     Dosage: 1 DOSE FORM, ONCE DAILY
     Route: 048

REACTIONS (6)
  - Hepatitis [Recovering/Resolving]
  - Depression [Unknown]
  - Cytomegalovirus hepatitis [Unknown]
  - Breath sounds abnormal [Unknown]
  - Frequent bowel movements [Unknown]
  - Asthenia [Unknown]

NARRATIVE: CASE EVENT DATE: 20140212
